FAERS Safety Report 17239993 (Version 1)
Quarter: 2020Q1

REPORT INFORMATION
  Report Type: Spontaneous
  Country: US (occurrence: US)
  Receive Date: 20200107
  Receipt Date: 20200107
  Transmission Date: 20200409
  Serious: No
  Sender: FDA-Public Use
  Company Number: US-LUPIN PHARMACEUTICALS INC.-2018-08567

PATIENT
  Age: 9 Month
  Sex: Male

DRUGS (1)
  1. CEFDINIR FOR ORAL SUSPENSION [Suspect]
     Active Substance: CEFDINIR
     Indication: EAR INFECTION
     Dosage: UNK
     Route: 048
     Dates: start: 20181121

REACTIONS (5)
  - Erythema [Unknown]
  - Product storage error [Unknown]
  - Therapeutic response decreased [Unknown]
  - Ear infection [Unknown]
  - Ear swelling [Unknown]
